FAERS Safety Report 4918192-4 (Version None)
Quarter: 2006Q1

REPORT INFORMATION
  Report Type: 
  Country: None (occurrence: None)
  Receive Date: 20060113
  Receipt Date: 20051014
  Transmission Date: 20060701
  Serious: No
  Sender: FDA-Public Use
  Company Number: 2005SP003534

PATIENT
  Age: 42 Year
  Sex: Female
  Weight: 70.3075 kg

DRUGS (4)
  1. LUNESTA [Suspect]
     Indication: INITIAL INSOMNIA
     Dosage: 2 MG; HS; ORAL
     Route: 048
     Dates: start: 20051013, end: 20051001
  2. ALBUTEROL [Concomitant]
  3. ORAL CONTRACEPTIVE NOS [Concomitant]
  4. THYROXIN [Concomitant]

REACTIONS (1)
  - DYSGEUSIA [None]
